FAERS Safety Report 25989835 (Version 1)
Quarter: 2025Q4

REPORT INFORMATION
  Report Type: Spontaneous
  Country: IN (occurrence: IN)
  Receive Date: 20251103
  Receipt Date: 20251103
  Transmission Date: 20260118
  Serious: Yes (Other)
  Sender: DR REDDYS
  Company Number: IN-BLG-IND/2025/10/016562

PATIENT
  Age: 5 Year
  Sex: Female

DRUGS (4)
  1. FILGRASTIM [Suspect]
     Active Substance: FILGRASTIM
     Indication: Acute myeloid leukaemia
     Dosage: WAS ADMINISTERED AT 0.5 ?G/KG/DAY VIA SUBCUTANEOUSLY FROM DAYS 1 TO 7
     Route: 058
  2. BORTEZOMIB [Suspect]
     Active Substance: BORTEZOMIB
     Indication: Acute myeloid leukaemia
     Dosage: DOSE OF 1.3MG/M2 AS AN INTRAVENOUS BOLUS PUSH ON DAYS 1, 4, 8, AND 11
     Route: 040
  3. FLUDARABINE [Suspect]
     Active Substance: FLUDARABINE PHOSPHATE
     Indication: Acute myeloid leukaemia
     Dosage: DAILY ON DAYS 2 TO 6 AT 30MG/M2 INTRAVENOUS INFUSION OVER 4 HOURS
     Route: 042
  4. CYTARABINE [Suspect]
     Active Substance: CYTARABINE
     Indication: Acute myeloid leukaemia
     Dosage: DISPENSED INTRAVENOUSLY AT 2 G/M2 OVER 4 HOURS ON DAYS 2 TO 6
     Route: 042

REACTIONS (2)
  - Pancytopenia [Unknown]
  - Product use in unapproved indication [Unknown]
